FAERS Safety Report 6689379-8 (Version None)
Quarter: 2010Q2

REPORT INFORMATION
  Report Type: 
  Country: None (occurrence: None)
  Receive Date: 20100419
  Receipt Date: 20100419
  Transmission Date: 20101027
  Serious: Yes (Hospitalization)
  Sender: FDA-Public Use
  Company Number: None

PATIENT
  Age: 11 Year
  Sex: Female
  Weight: 27.2158 kg

DRUGS (1)
  1. DELSYM [Suspect]
     Indication: COUGH
     Dosage: 2 TSP EVERY 12 HOURS PO
     Route: 048
     Dates: start: 20100109, end: 20100109

REACTIONS (3)
  - HYPERSENSITIVITY [None]
  - PRURITUS [None]
  - TREMOR [None]
